FAERS Safety Report 14731051 (Version 7)
Quarter: 2018Q4

REPORT INFORMATION
  Report Type: Report from Study
  Country: US (occurrence: US)
  Receive Date: 20180406
  Receipt Date: 20181009
  Transmission Date: 20190204
  Serious: Yes (Death, Hospitalization)
  Sender: FDA-Public Use
  Company Number: US-ACTELION-A-NJ2018-170126

PATIENT
  Age: 66 Year
  Sex: Female
  Weight: 83.45 kg

DRUGS (8)
  1. ADCIRCA [Suspect]
     Active Substance: TADALAFIL
     Indication: PULMONARY HYPERTENSION
     Dosage: 40 MG, QD
     Route: 065
     Dates: start: 20180606, end: 20180904
  2. LETAIRIS [Suspect]
     Active Substance: AMBRISENTAN
     Indication: CONNECTIVE TISSUE DISORDER
  3. LETAIRIS [Suspect]
     Active Substance: AMBRISENTAN
     Indication: PULMONARY HYPERTENSION
     Dosage: 10 MG, QD
     Route: 065
     Dates: start: 20180228, end: 20180904
  4. UPTRAVI [Suspect]
     Active Substance: SELEXIPAG
     Dosage: 600 MCG, BID
     Route: 048
  5. UPTRAVI [Suspect]
     Active Substance: SELEXIPAG
     Dosage: 1400 MCG, BID
     Route: 048
  6. UPTRAVI [Suspect]
     Active Substance: SELEXIPAG
     Indication: PULMONARY HYPERTENSION
     Dosage: 1000 MCG, BID
     Route: 048
  7. UPTRAVI [Suspect]
     Active Substance: SELEXIPAG
     Dosage: 1600 MCG, BID
     Route: 048
     Dates: end: 20180904
  8. ELIQUIS [Concomitant]
     Active Substance: APIXABAN

REACTIONS (16)
  - Vomiting [Unknown]
  - Heart rate increased [Unknown]
  - Nausea [Unknown]
  - Cardiac failure [Fatal]
  - Dyspnoea [Unknown]
  - Disease progression [Fatal]
  - Decreased appetite [Unknown]
  - Hypotension [Unknown]
  - Constipation [Unknown]
  - Transfusion [Unknown]
  - Asthenia [Unknown]
  - Faeces discoloured [Unknown]
  - Somnolence [Unknown]
  - Depressed mood [Unknown]
  - Pericardial drainage [Unknown]
  - Restlessness [Unknown]

NARRATIVE: CASE EVENT DATE: 20180412
